FAERS Safety Report 20520873 (Version 1)
Quarter: 2022Q1

REPORT INFORMATION
  Report Type: Spontaneous
  Country: CN (occurrence: CN)
  Receive Date: 20220225
  Receipt Date: 20220225
  Transmission Date: 20220423
  Serious: Yes (Other)
  Sender: FDA-Public Use
  Company Number: CN-JNJFOC-20220246595

PATIENT
  Age: 65 Year
  Sex: Female
  Weight: 55 kg

DRUGS (3)
  1. FENTANYL [Suspect]
     Active Substance: FENTANYL
     Indication: Cancer pain
     Dosage: (SMALL)
     Route: 062
     Dates: start: 20220130, end: 20220212
  2. FENTANYL [Suspect]
     Active Substance: FENTANYL
     Dosage: (LARGE)
     Route: 062
     Dates: start: 20220130, end: 20220212
  3. ZOLPIDEM TARTRATE [Concomitant]
     Active Substance: ZOLPIDEM TARTRATE
     Indication: Sleep disorder
     Dosage: EVERY NIGHT
     Route: 048
     Dates: start: 20220130

REACTIONS (3)
  - Coma [Recovering/Resolving]
  - Hallucination [Recovering/Resolving]
  - Hyperhidrosis [Recovering/Resolving]

NARRATIVE: CASE EVENT DATE: 20220208
